FAERS Safety Report 16088927 (Version 2)
Quarter: 2019Q2

REPORT INFORMATION
  Report Type: Report from Study
  Country: JP (occurrence: JP)
  Receive Date: 20190319
  Receipt Date: 20190402
  Transmission Date: 20190711
  Serious: Yes (Hospitalization, Other)
  Sender: FDA-Public Use
  Company Number: JP-AMGEN-JPNNI2019040750

PATIENT
  Age: 75 Year
  Sex: Male
  Weight: 51 kg

DRUGS (3)
  1. ETELCALCETIDE [Suspect]
     Active Substance: ETELCALCETIDE
     Indication: HYPERPARATHYROIDISM SECONDARY
     Dosage: 5 MILLIGRAM, 3 TIMES/WK (5 MG, Q56H)
     Route: 010
     Dates: start: 20171220
  2. FOSRENOL [Concomitant]
     Active Substance: LANTHANUM CARBONATE
     Indication: HYPERPHOSPHATAEMIA
     Dosage: 750 MILLIGRAM
     Route: 048
  3. OXAROL [Concomitant]
     Active Substance: MAXACALCITOL
     Dosage: 5 MICROGRAM (5 UG)
     Route: 010

REACTIONS (1)
  - Cholecystitis acute [Recovered/Resolved]

NARRATIVE: CASE EVENT DATE: 20180507
